FAERS Safety Report 17531969 (Version 1)
Quarter: 2020Q1

REPORT INFORMATION
  Report Type: Spontaneous
  Country: US (occurrence: US)
  Receive Date: 20200311
  Receipt Date: 20200311
  Transmission Date: 20200409
  Serious: Yes (Hospitalization, Other)
  Sender: FDA-Public Use
  Company Number: US-ELI_LILLY_AND_COMPANY-US202003000601

PATIENT
  Sex: Male

DRUGS (3)
  1. HUMALOG [Suspect]
     Active Substance: INSULIN LISPRO
     Indication: TYPE 2 DIABETES MELLITUS
     Dosage: UNK, PRN
     Route: 058
  2. HUMALOG [Suspect]
     Active Substance: INSULIN LISPRO
     Dosage: UNK, PRN
     Route: 058
  3. LEVEMIR [Concomitant]
     Active Substance: INSULIN DETEMIR
     Indication: TYPE 2 DIABETES MELLITUS
     Dosage: 60 U
     Dates: start: 2015

REACTIONS (7)
  - Cataract [Recovering/Resolving]
  - Loss of consciousness [Recovered/Resolved]
  - Eye discharge [Recovering/Resolving]
  - Vomiting [Recovered/Resolved]
  - Malaise [Recovered/Resolved]
  - Muscle spasms [Recovered/Resolved]
  - Renal disorder [Recovered/Resolved]
